FAERS Safety Report 7215961-5 (Version None)
Quarter: 2011Q1

REPORT INFORMATION
  Report Type: 
  Country: None (occurrence: None)
  Receive Date: 20110107
  Receipt Date: 20101130
  Transmission Date: 20110831
  Serious: Yes (Hospitalization)
  Sender: FDA-Public Use
  Company Number: JP-MERCK-1012USA00772

PATIENT
  Age: 40 Year
  Sex: Female

DRUGS (3)
  1. FOSAMAX [Suspect]
     Route: 048
     Dates: start: 20101115, end: 20101129
  2. BAKTAR [Suspect]
     Route: 048
  3. PREDONINE [Concomitant]
     Route: 065

REACTIONS (6)
  - PLATELET COUNT DECREASED [None]
  - PYREXIA [None]
  - ERYTHEMA [None]
  - RASH [None]
  - ALANINE AMINOTRANSFERASE INCREASED [None]
  - ASPARTATE AMINOTRANSFERASE INCREASED [None]
